FAERS Safety Report 8810328 (Version 2)
Quarter: 2013Q3

REPORT INFORMATION
  Report Type: Spontaneous
  Country: US (occurrence: US)
  Receive Date: 20120926
  Receipt Date: 20130906
  Transmission Date: 20140515
  Serious: Yes (Death, Hospitalization, Disabling, Other)
  Sender: FDA-Public Use
  Company Number: US-009507513-1201USA02553

PATIENT
  Sex: Male

DRUGS (1)
  1. FOSAMAX [Suspect]
     Indication: OSTEOPOROSIS
     Dosage: 70 MG, QW
     Route: 048
     Dates: start: 200206, end: 200604

REACTIONS (37)
  - Femur fracture [Not Recovered/Not Resolved]
  - Internal fixation of fracture [Unknown]
  - Respiratory arrest [Fatal]
  - Multi-organ failure [Fatal]
  - Arteriosclerosis coronary artery [Fatal]
  - Renal failure chronic [Not Recovered/Not Resolved]
  - Atrial fibrillation [Unknown]
  - Knee arthroplasty [Unknown]
  - Spinal operation [Unknown]
  - Colectomy [Unknown]
  - Urosepsis [Recovered/Resolved]
  - Pneumonia [Recovered/Resolved]
  - Azotaemia [Recovering/Resolving]
  - Renal failure acute [Unknown]
  - Cardiovascular disorder [Unknown]
  - Gastroenteritis [Unknown]
  - Diverticulitis [Unknown]
  - Spinal fracture [Unknown]
  - Electrocardiogram ST-T segment abnormal [Unknown]
  - Cardiomegaly [Unknown]
  - Fall [Unknown]
  - Spinal column stenosis [Unknown]
  - Spondylitis [Unknown]
  - Urinary tract infection [Unknown]
  - Atelectasis [Unknown]
  - Hyponatraemia [Unknown]
  - Mental status changes [Unknown]
  - Malnutrition [Unknown]
  - Dysphonia [Not Recovered/Not Resolved]
  - Stomach scan abnormal [Unknown]
  - Pleural effusion [Unknown]
  - Agitation [Unknown]
  - Insomnia [Unknown]
  - Dysphagia [Unknown]
  - Diarrhoea [Recovering/Resolving]
  - Constipation [Unknown]
  - Back pain [Not Recovered/Not Resolved]
